FAERS Safety Report 5797035-3 (Version None)
Quarter: 2008Q3

REPORT INFORMATION
  Report Type: 
  Country: None (occurrence: None)
  Receive Date: 20080701
  Receipt Date: 20080620
  Transmission Date: 20090109
  Serious: Yes (Hospitalization)
  Sender: FDA-Public Use
  Company Number: JP-ELI_LILLY_AND_COMPANY-JP200806005118

PATIENT
  Age: 65 Year
  Sex: Male

DRUGS (8)
  1. HUMALOG [Suspect]
  2. HUMALOG [Suspect]
     Dosage: 7 IU, 2/D
     Route: 058
     Dates: start: 20071026, end: 20071209
  3. HUMALOG [Suspect]
     Dosage: 10 IU, EACH MORNING
     Route: 058
     Dates: start: 20071210, end: 20071212
  4. HUMALOG [Suspect]
     Dosage: 7 IU, EACH EVENING
     Route: 058
     Dates: start: 20071210, end: 20071212
  5. HUMALOG [Suspect]
     Dosage: 13 IU, EACH MORNING
     Route: 058
     Dates: start: 20071213, end: 20071217
  6. HUMALOG [Suspect]
     Dosage: 3 IU, EACH EVENING
     Route: 058
     Dates: start: 20071213, end: 20071217
  7. HUMACART NPH [Suspect]
     Route: 058
  8. NOVOLOG MIX 70/30 [Concomitant]
     Route: 058
     Dates: end: 20071004

REACTIONS (3)
  - ANTI-INSULIN ANTIBODY POSITIVE [None]
  - BLOOD GLUCOSE INCREASED [None]
  - GLYCOSYLATED HAEMOGLOBIN INCREASED [None]
